FAERS Safety Report 22281218 (Version 1)
Quarter: 2023Q2

REPORT INFORMATION
  Report Type: Spontaneous
  Country: US (occurrence: US)
  Receive Date: 20230504
  Receipt Date: 20230504
  Transmission Date: 20230722
  Serious: No
  Sender: FDA-Public Use
  Company Number: US-SA-SAC20230427000540

PATIENT
  Age: 34 Year
  Sex: Female
  Weight: 117.9 kg

DRUGS (6)
  1. DUPIXENT [Suspect]
     Active Substance: DUPILUMAB
     Indication: Neurodermatitis
     Dosage: 300 MG QOW
     Route: 058
     Dates: start: 201903
  2. DUPIXENT [Suspect]
     Active Substance: DUPILUMAB
     Indication: Dermatitis atopic
  3. DIFFERIN [Concomitant]
     Active Substance: ADAPALENE
  4. SPIRONOLACTONE [Concomitant]
     Active Substance: SPIRONOLACTONE
  5. OVIDREL [Concomitant]
     Active Substance: CHORIOGONADOTROPIN ALFA
     Dosage: OVIDREL 250MCG/0.5 SYRINGE
  6. CLOMIPHENE CITRATE [Concomitant]
     Active Substance: CLOMIPHENE CITRATE

REACTIONS (1)
  - Dry skin [Not Recovered/Not Resolved]
